FAERS Safety Report 4596138-9 (Version None)
Quarter: 2005Q1

REPORT INFORMATION
  Report Type: 
  Country: None (occurrence: None)
  Receive Date: 20050302
  Receipt Date: 20050121
  Transmission Date: 20050727
  Serious: Yes (Other)
  Sender: FDA-Public Use
  Company Number: DE-ROCHE-393126

PATIENT
  Age: 44 Year
  Sex: Female

DRUGS (1)
  1. ROCEPHIN [Suspect]
     Indication: LYME DISEASE
     Route: 042
     Dates: start: 20050105, end: 20050117

REACTIONS (5)
  - CHILLS [None]
  - EXANTHEM [None]
  - MYALGIA [None]
  - NAUSEA [None]
  - PYREXIA [None]
